FAERS Safety Report 10606737 (Version 4)
Quarter: 2015Q2

REPORT INFORMATION
  Report Type: Spontaneous
  Country: US (occurrence: US)
  Receive Date: 20141125
  Receipt Date: 20150514
  Transmission Date: 20150821
  Serious: No
  Sender: FDA-Public Use
  Company Number: US-009507513-1410USA013973

PATIENT
  Age: 25 Year
  Sex: Female
  Weight: 43.99 kg

DRUGS (1)
  1. IMPLANON [Suspect]
     Active Substance: ETONOGESTREL
     Indication: CONTRACEPTION
     Dosage: 1 DF, UNK, 3 YEAR IMPLANT IN RIGHT ARM
     Route: 023
     Dates: start: 20101201

REACTIONS (4)
  - Vaginal discharge [Unknown]
  - Fatigue [Unknown]
  - Menorrhagia [Unknown]
  - Incorrect drug administration duration [Unknown]

NARRATIVE: CASE EVENT DATE: 20131202
